FAERS Safety Report 23375184 (Version 5)
Quarter: 2024Q1

REPORT INFORMATION
  Report Type: Spontaneous
  Country: US (occurrence: US)
  Receive Date: 20240106
  Receipt Date: 20240213
  Transmission Date: 20240410
  Serious: Yes (Other)
  Sender: FDA-Public Use
  Company Number: US-GSKCCFUS-Case-01893391_AE-105632

PATIENT

DRUGS (1)
  1. FLUTICASONE PROPIONATE [Suspect]
     Active Substance: FLUTICASONE PROPIONATE
     Indication: Product used for unknown indication
     Dosage: 110 UG, BID
     Dates: start: 202311

REACTIONS (10)
  - Bronchiolitis [Unknown]
  - Gastrooesophageal sphincter insufficiency [Unknown]
  - Illness [Unknown]
  - Sinusitis [Unknown]
  - Bronchitis [Unknown]
  - Secretion discharge [Unknown]
  - Bronchospasm [Unknown]
  - Hypoacusis [Unknown]
  - Incorrect dose administered [Unknown]
  - Product complaint [Unknown]
